FAERS Safety Report 17228089 (Version 1)
Quarter: 2020Q1

REPORT INFORMATION
  Report Type: Spontaneous
  Country: DE (occurrence: DE)
  Receive Date: 20200103
  Receipt Date: 20200103
  Transmission Date: 20200409
  Serious: Yes (Life-Threatening)
  Sender: FDA-Public Use
  Company Number: DE-BRISTOL-MYERS SQUIBB COMPANY-BMS-2019-125017

PATIENT
  Age: 84 Year
  Sex: Female

DRUGS (1)
  1. ELIQUIS [Suspect]
     Active Substance: APIXABAN
     Indication: CEREBROVASCULAR ACCIDENT PROPHYLAXIS
     Dosage: 5 MILLIGRAM, DAILY
     Route: 048
     Dates: start: 20160926, end: 20190403

REACTIONS (3)
  - Confusional state [Recovered/Resolved]
  - Dysphagia [Recovered/Resolved]
  - Depression [Recovered/Resolved]
